FAERS Safety Report 7332474-0 (Version None)
Quarter: 2011Q1

REPORT INFORMATION
  Report Type: 
  Country: None (occurrence: None)
  Receive Date: 20110304
  Receipt Date: 20110302
  Transmission Date: 20110831
  Serious: Yes (Death, Other)
  Sender: FDA-Public Use
  Company Number: RU-BRISTOL-MYERS SQUIBB COMPANY-15581937

PATIENT
  Sex: Male

DRUGS (1)
  1. ATAZANAVIR [Suspect]
     Indication: HIV INFECTION

REACTIONS (1)
  - LUNG NEOPLASM MALIGNANT [None]
